FAERS Safety Report 4548184-9 (Version None)
Quarter: 2005Q1

REPORT INFORMATION
  Report Type: 
  Country: None (occurrence: None)
  Receive Date: 20041227
  Receipt Date: 20040928
  Transmission Date: 20050727
  Serious: No
  Sender: FDA-Public Use
  Company Number: 04P-163-0275142-00

PATIENT
  Sex: Female

DRUGS (2)
  1. HUMIRA [Suspect]
     Indication: RHEUMATOID ARTHRITIS
     Dosage: 40 MG, 1 IN 2 D, SUBCUTANEOUS
     Route: 058
     Dates: start: 20031101, end: 20040901
  2. CODEINE [Concomitant]

REACTIONS (2)
  - MYALGIA [None]
  - SINUSITIS [None]
